FAERS Safety Report 7312552-2 (Version None)
Quarter: 2011Q1

REPORT INFORMATION
  Report Type: 
  Country: None (occurrence: None)
  Receive Date: 20110224
  Receipt Date: 20110215
  Transmission Date: 20110831
  Serious: Yes (Hospitalization)
  Sender: FDA-Public Use
  Company Number: US-ASTRAZENECA-2011SE08929

PATIENT
  Age: 51 Year
  Sex: Female

DRUGS (6)
  1. CRESTOR [Suspect]
     Route: 048
  2. VITAMIN B [Concomitant]
  3. CALCIUM [Concomitant]
  4. HYDROCODONE BITARTRATE [Concomitant]
  5. ASPIRIN [Concomitant]
  6. CLONAZEPAM [Concomitant]

REACTIONS (2)
  - ARTERIAL OCCLUSIVE DISEASE [None]
  - PAIN IN EXTREMITY [None]
